FAERS Safety Report 13995155 (Version 1)
Quarter: 2017Q3

REPORT INFORMATION
  Report Type: Spontaneous
  Country: US (occurrence: US)
  Receive Date: 20170921
  Receipt Date: 20170921
  Transmission Date: 20171128
  Serious: No
  Sender: FDA-Public Use
  Company Number: US-AUROBINDO-AUR-APL-2016-15424

PATIENT
  Age: 79 Year
  Sex: Female
  Weight: 63.49 kg

DRUGS (1)
  1. ALENDRONATE SODIUM TABLETS USP 70MG [Suspect]
     Active Substance: ALENDRONATE SODIUM
     Indication: OSTEOGENESIS IMPERFECTA
     Dosage: 70 MG, WEEKLY
     Route: 048
     Dates: start: 20161205

REACTIONS (5)
  - Headache [Not Recovered/Not Resolved]
  - Chest pain [Not Recovered/Not Resolved]
  - Pain in jaw [Not Recovered/Not Resolved]
  - Swelling face [Not Recovered/Not Resolved]
  - Abdominal pain upper [Not Recovered/Not Resolved]

NARRATIVE: CASE EVENT DATE: 20161205
